FAERS Safety Report 6411607-4 (Version None)
Quarter: 2009Q4

REPORT INFORMATION
  Report Type: 
  Country: None (occurrence: None)
  Receive Date: 20091023
  Receipt Date: 20091016
  Transmission Date: 20100525
  Serious: Yes (Hospitalization, Disabling, Other)
  Sender: FDA-Public Use
  Company Number: JP-B.I. PHARMACEUTICALS,INC./RIDGEFIELD-2009-BP-09281NB

PATIENT
  Age: 79 Year
  Sex: Female

DRUGS (6)
  1. BI-SIFROL TABLETS [Suspect]
     Indication: PARKINSON'S DISEASE
     Dosage: 3 MG
     Route: 048
     Dates: start: 20081121, end: 20090727
  2. PLETAL [Suspect]
     Dosage: 200 MG
     Route: 048
     Dates: end: 20090727
  3. LANSOPRAZOLE [Suspect]
     Dosage: 15 MG
     Route: 048
     Dates: end: 20090727
  4. HOCHU-EKKI-TO [Suspect]
     Dosage: 7.5 G
     Route: 048
     Dates: end: 20090727
  5. GASMOTIN [Concomitant]
     Dosage: 3 DF
     Route: 048
     Dates: end: 20090727
  6. ALMARL [Concomitant]
     Dosage: 10 MG
     Route: 048
     Dates: end: 20090727

REACTIONS (1)
  - INTERSTITIAL LUNG DISEASE [None]
